FAERS Safety Report 9112654 (Version 2)
Quarter: 2013Q1

REPORT INFORMATION
  Report Type: Spontaneous
  Country: BR (occurrence: BR)
  Receive Date: 20130211
  Receipt Date: 20130315
  Transmission Date: 20140127
  Serious: Yes (Other)
  Sender: FDA-Public Use
  Company Number: PHHY2013BR012829

PATIENT
  Age: 63 Year
  Sex: Female
  Weight: 90 kg

DRUGS (3)
  1. DIOVAN AMLO FIX [Suspect]
     Indication: BLOOD PRESSURE ABNORMAL
     Dosage: 1 DF (160/5MG), PER DAY
     Route: 048
  2. HYDROCHLOROTHIAZIDE [Suspect]
     Indication: DIURETIC THERAPY
     Dosage: 25 MG, DAILY
     Route: 048
  3. MAREVAN [Suspect]
     Indication: ANTICOAGULANT THERAPY
     Dosage: 5MG, DAILY
     Route: 048

REACTIONS (1)
  - Haemorrhagic stroke [Recovering/Resolving]
